FAERS Safety Report 9191209 (Version 2)
Quarter: 2013Q2

REPORT INFORMATION
  Report Type: Spontaneous
  Country: US (occurrence: US)
  Receive Date: 20130326
  Receipt Date: 20130409
  Transmission Date: 20140414
  Serious: Yes (Other)
  Sender: FDA-Public Use
  Company Number: US-ROCHE-1205236

PATIENT
  Age: 43 Year
  Sex: Female
  Weight: 108.96 kg

DRUGS (14)
  1. XOLAIR [Suspect]
     Indication: IDIOPATHIC URTICARIA
     Dosage: LAST DOSE: 19/FEB/2013
     Route: 058
     Dates: start: 2011
  2. XOLAIR [Suspect]
     Indication: OFF LABEL USE
  3. XOLAIR [Suspect]
     Indication: ASTHMA
  4. SINGULAIR [Concomitant]
     Indication: ASTHMA
     Route: 048
     Dates: start: 20090625
  5. LEVOCETIRIZINE [Concomitant]
     Indication: URTICARIA
     Route: 048
     Dates: start: 20090625
  6. HYDROXYZINE [Concomitant]
     Indication: URTICARIA
     Dosage: 25 TO 50 MG
     Route: 048
     Dates: start: 20100721
  7. ZANTAC [Concomitant]
     Indication: URTICARIA
     Route: 048
     Dates: start: 2009
  8. OMEPRAZOLE [Concomitant]
     Indication: URTICARIA
     Route: 048
     Dates: start: 2011
  9. AMLODIPINE [Concomitant]
  10. SERTRALINE [Concomitant]
     Dosage: START DATE: PRIOR TO 25/JUN/2009
     Route: 048
  11. SYNTHROID [Concomitant]
     Indication: HYPOTHYROIDISM
     Dosage: START DATE: PRIOR TO 25/JUN/2009
     Route: 048
  12. ATIVAN [Concomitant]
     Indication: ANXIETY
  13. DUONEB [Concomitant]
     Indication: ASTHMA
     Dosage: PRN; START DATE: PRIOR TO 25/JUN/2009
     Route: 065
  14. ADVAIR [Concomitant]
     Indication: ASTHMA
     Route: 065
     Dates: start: 20100401

REACTIONS (2)
  - Renal failure chronic [Unknown]
  - Asthma [Unknown]
